FAERS Safety Report 15414905 (Version 1)
Quarter: 2018Q3

REPORT INFORMATION
  Report Type: Report from Study
  Country: US (occurrence: US)
  Receive Date: 20180921
  Receipt Date: 20180921
  Transmission Date: 20181010
  Serious: Yes (Other)
  Sender: FDA-Public Use
  Company Number: US-INCYTE CORPORATION-2018IN008545

PATIENT

DRUGS (5)
  1. JAKAFI [Suspect]
     Active Substance: RUXOLITINIB
     Dosage: 20 MG, BID
     Route: 065
     Dates: start: 20161213, end: 201801
  2. JAKAFI [Suspect]
     Active Substance: RUXOLITINIB
     Indication: PRIMARY MYELOFIBROSIS
     Dosage: 20 MG, BID
     Route: 048
     Dates: start: 20161006
  3. IRON [Concomitant]
     Active Substance: IRON
     Indication: IRON DEFICIENCY
     Dosage: UNK
     Route: 048
  4. JAKAFI [Suspect]
     Active Substance: RUXOLITINIB
     Dosage: 25 MG, BID
     Route: 048
     Dates: start: 20180723
  5. JAKAFI [Suspect]
     Active Substance: RUXOLITINIB
     Dosage: 30 MG TOTAL DAILY DOSE
     Dates: end: 20161213

REACTIONS (4)
  - Chronic kidney disease [Unknown]
  - Haemoglobin decreased [Recovering/Resolving]
  - Mycobacterium avium complex infection [Unknown]
  - Platelet count increased [Not Recovered/Not Resolved]
